FAERS Safety Report 9614311 (Version 1)
Quarter: 2013Q4

REPORT INFORMATION
  Report Type: Spontaneous
  Country: US (occurrence: US)
  Receive Date: 20131011
  Receipt Date: 20131011
  Transmission Date: 20140711
  Serious: No
  Sender: FDA-Public Use
  Company Number: US-009507513-1310USA003935

PATIENT
  Age: 18 Year
  Sex: Female

DRUGS (1)
  1. NEXPLANON [Suspect]
     Indication: CONTRACEPTION
     Dosage: STANDARD DOSE
     Route: 059
     Dates: start: 201305

REACTIONS (7)
  - Blister [Unknown]
  - Furuncle [Unknown]
  - Skin lesion [Unknown]
  - Urticaria [Unknown]
  - Purulence [Unknown]
  - Furuncle [Unknown]
  - Furuncle [Unknown]
